FAERS Safety Report 6228815-8 (Version None)
Quarter: 2009Q2

REPORT INFORMATION
  Report Type: 
  Country: None (occurrence: None)
  Receive Date: 20090615
  Receipt Date: 20090604
  Transmission Date: 20091009
  Serious: Yes (Death, Other)
  Sender: FDA-Public Use
  Company Number: PHHY2009JP20736

PATIENT
  Age: 52 Year
  Sex: Male

DRUGS (4)
  1. CYCLOSPORINE [Suspect]
     Indication: STEM CELL TRANSPLANT
     Dosage: UNK
  2. FLUDARABINE PHOSPHATE [Concomitant]
     Indication: ALLOGENIC BONE MARROW TRANSPLANTATION THERAPY
     Dosage: 30MG/M^2/DAY
  3. L-PAM [Concomitant]
     Dosage: 80MG/M^2
  4. DEXAMETHASONE [Concomitant]
     Dosage: UNK

REACTIONS (4)
  - ACUTE GRAFT VERSUS HOST DISEASE IN SKIN [None]
  - CANDIDA SEPSIS [None]
  - CHRONIC GRAFT VERSUS HOST DISEASE [None]
  - PLASMACYTOMA [None]
